FAERS Safety Report 9174248 (Version 1)
Quarter: 2013Q1

REPORT INFORMATION
  Report Type: Spontaneous
  Country: GB (occurrence: None)
  Receive Date: 20130318
  Receipt Date: 20130318
  Transmission Date: 20140127
  Serious: Yes (Disabling)
  Sender: FDA-Public Use
  Company Number: 1629120

PATIENT
  Age: 48 Year
  Sex: 0
  Weight: 18.14 kg

DRUGS (3)
  1. METHOTREXATE [Suspect]
     Indication: CROHN^S DISEASE
     Route: 048
     Dates: start: 20060207
  2. METHOTREXATE [Suspect]
     Indication: CROHN^S DISEASE
     Route: 048
     Dates: start: 20060207
  3. ADALIMUMAB [Suspect]

REACTIONS (4)
  - Injection site pain [None]
  - Injection site pain [None]
  - Injection site inflammation [None]
  - Injection site pruritus [None]
